FAERS Safety Report 6260985-8 (Version None)
Quarter: 2009Q3

REPORT INFORMATION
  Report Type: 
  Country: None (occurrence: None)
  Receive Date: 20090707
  Receipt Date: 20090622
  Transmission Date: 20100115
  Serious: Yes (Hospitalization)
  Sender: FDA-Public Use
  Company Number: 2009001588

PATIENT
  Sex: Female
  Weight: 51.6193 kg

DRUGS (5)
  1. ERLOTINIB (ERLOTINIB) (TABLET) (ERLOTINIB) [Suspect]
     Indication: NON-SMALL CELL LUNG CANCER
     Dosage: 150 MG, QD, ORAL, 100 MG, QD, ORAL, 50 MG, ORAL
     Route: 048
     Dates: start: 20090109, end: 20090123
  2. ERLOTINIB (ERLOTINIB) (TABLET) (ERLOTINIB) [Suspect]
     Indication: NON-SMALL CELL LUNG CANCER
     Dosage: 150 MG, QD, ORAL, 100 MG, QD, ORAL, 50 MG, ORAL
     Route: 048
     Dates: start: 20090126, end: 20090304
  3. ERLOTINIB (ERLOTINIB) (TABLET) (ERLOTINIB) [Suspect]
     Indication: NON-SMALL CELL LUNG CANCER
     Dosage: 150 MG, QD, ORAL, 100 MG, QD, ORAL, 50 MG, ORAL
     Route: 048
     Dates: start: 20090326, end: 20090526
  4. SORAFENIB/PLACEBO [Suspect]
     Indication: NON-SMALL CELL LUNG CANCER
     Dosage: 400 MG, BID, 200 MG, BID
     Dates: start: 20090109, end: 20090217
  5. SORAFENIB/PLACEBO [Suspect]
     Indication: NON-SMALL CELL LUNG CANCER
     Dosage: 400 MG, BID, 200 MG, BID
     Dates: start: 20090223, end: 20090526

REACTIONS (6)
  - BILE DUCT OBSTRUCTION [None]
  - DEHYDRATION [None]
  - DIARRHOEA [None]
  - METASTASIS [None]
  - NAUSEA [None]
  - VOMITING [None]
